FAERS Safety Report 7808387-4 (Version None)
Quarter: 2011Q4

REPORT INFORMATION
  Report Type: 
  Country: None (occurrence: None)
  Receive Date: 20111007
  Receipt Date: 20110926
  Transmission Date: 20120403
  Serious: Yes (Hospitalization)
  Sender: FDA-Public Use
  Company Number: DSM-2011-00849

PATIENT
  Age: 89 Year
  Sex: Female

DRUGS (2)
  1. FUROSEMIDE [Suspect]
     Indication: HYPERTENSION
     Dosage: 20 MG (20 MG,1 IN 1 D), ORAL
     Route: 048
     Dates: start: 20110825, end: 20110901
  2. AMLODIPINE BESYLATE AND OLMESARTAN MEDOXOMIL [Suspect]
     Indication: HYPERTENSION
     Dosage: 20/5 MG (1 IN 1 D),ORAL
     Route: 048
     Dates: start: 20110825, end: 20110901

REACTIONS (4)
  - CONFUSIONAL STATE [None]
  - MALAISE [None]
  - RENAL FAILURE ACUTE [None]
  - HYPOTENSION [None]
